FAERS Safety Report 4292412-4 (Version None)
Quarter: 2004Q1

REPORT INFORMATION
  Report Type: 
  Country: None (occurrence: None)
  Receive Date: 20040126
  Receipt Date: 20030902
  Transmission Date: 20041129
  Serious: No
  Sender: FDA-Public Use
  Company Number: USA030946014

PATIENT
  Age: 83 Year
  Sex: Female
  Weight: 59 kg

DRUGS (2)
  1. FORTEO [Suspect]
     Indication: OSTEOPOROSIS
     Dosage: 20UG/DAY
     Dates: start: 20030803
  2. PRILOSEC [Concomitant]

REACTIONS (6)
  - ABDOMINAL DISCOMFORT [None]
  - ARTHRALGIA [None]
  - DIARRHOEA [None]
  - FLATULENCE [None]
  - NAUSEA [None]
  - VOMITING [None]
